FAERS Safety Report 13886055 (Version 2)
Quarter: 2017Q4

REPORT INFORMATION
  Report Type: Report from Study
  Country: JP (occurrence: JP)
  Receive Date: 20170821
  Receipt Date: 20171103
  Transmission Date: 20180320
  Serious: Yes (Hospitalization)
  Sender: FDA-Public Use
  Company Number: JP-VIFOR (INTERNATIONAL) INC.-VIT-2017-08749

PATIENT
  Age: 84 Year
  Sex: Female
  Weight: 45 kg

DRUGS (24)
  1. VELPHORO [Suspect]
     Active Substance: FERRIC OXYHYDROXIDE
     Indication: HYPERPHOSPHATAEMIA
     Route: 048
     Dates: start: 20161206, end: 20170131
  2. UROKINASE [Concomitant]
     Active Substance: UROKINASE
     Dates: start: 20161224, end: 20161224
  3. VELPHORO [Suspect]
     Active Substance: FERRIC OXYHYDROXIDE
     Route: 048
     Dates: start: 20170228
  4. BAYASPIRIN [Concomitant]
     Active Substance: ASPIRIN
     Route: 048
  5. UROKINASE [Concomitant]
     Active Substance: UROKINASE
     Dates: start: 20161222, end: 20161222
  6. NESP [Concomitant]
     Active Substance: DARBEPOETIN ALFA
     Dates: start: 20170131, end: 20170307
  7. NEXIUM [Concomitant]
     Active Substance: ESOMEPRAZOLE MAGNESIUM
     Route: 048
  8. GLUFAST [Concomitant]
     Active Substance: MITIGLINIDE
     Route: 048
  9. UROKINASE [Concomitant]
     Active Substance: UROKINASE
     Dates: start: 20170117, end: 20170117
  10. GLUCONSAN K [Concomitant]
     Active Substance: POTASSIUM GLUCONATE
     Route: 048
  11. UROKINASE [Concomitant]
     Active Substance: UROKINASE
     Dates: start: 20161229, end: 20161229
  12. RISUMIC [Concomitant]
     Active Substance: AMEZINIUM METILSULFATE
     Route: 048
     Dates: start: 20170107
  13. NESP [Concomitant]
     Active Substance: DARBEPOETIN ALFA
     Dates: start: 20170321
  14. EQUA [Concomitant]
     Active Substance: VILDAGLIPTIN
     Route: 048
  15. MINOMYCIN [Concomitant]
     Active Substance: MINOCYCLINE HYDROCHLORIDE
     Route: 048
     Dates: start: 20170221
  16. FLOMOX [Concomitant]
     Active Substance: CEFCAPENE PIVOXIL HYDROCHLORIDE HYDRATE
     Route: 048
     Dates: start: 20170103, end: 20170107
  17. UROKINASE [Concomitant]
     Active Substance: UROKINASE
     Dates: start: 20161217, end: 20161217
  18. LASIX [Concomitant]
     Active Substance: FUROSEMIDE
     Route: 048
  19. RIVASTACH [Concomitant]
     Active Substance: RIVASTIGMINE
     Route: 050
  20. NEW LECICARBON [Concomitant]
     Active Substance: SODIUM BICARBONATE\SODIUM PHOSPHATE, MONOBASIC
     Dosage: 1 PIECE
     Dates: start: 20170121
  21. EPOETIN ALFA BS [Concomitant]
     Active Substance: ERYTHROPOIETIN
     Dates: start: 20161129, end: 20161222
  22. NESP [Concomitant]
     Active Substance: DARBEPOETIN ALFA
     Dates: start: 20170117, end: 20170124
  23. THYRADIN-S [Concomitant]
     Active Substance: LEVOTHYROXINE
     Route: 048
  24. LAXOBERON [Concomitant]
     Active Substance: SODIUM PICOSULFATE
     Route: 048

REACTIONS (3)
  - Dialysis related complication [Recovering/Resolving]
  - Blood alkaline phosphatase increased [Not Recovered/Not Resolved]
  - Blood parathyroid hormone increased [Recovering/Resolving]

NARRATIVE: CASE EVENT DATE: 20170131
